FAERS Safety Report 8921736 (Version 1)
Quarter: 2012Q4

REPORT INFORMATION
  Report Type: 
  Country: AU (occurrence: AU)
  Receive Date: 20121121
  Receipt Date: 20121121
  Transmission Date: 20130627
  Serious: Yes (Other)
  Sender: FDA-Public Use
  Company Number: AU-ROCHE-216745

PATIENT
  Age: 45 Year
  Sex: Male

DRUGS (9)
  1. ROCEPHIN [Suspect]
     Indication: LUNG DISORDER
     Route: 042
     Dates: start: 19951104, end: 19951106
  2. FUNGIZONE [Suspect]
     Indication: ASPERGILLOSIS
     Route: 042
     Dates: start: 19951106, end: 19951108
  3. PENTAMIDINE ISETHIONATE [Suspect]
     Indication: INFECTION PARASITIC
     Route: 042
  4. VANCOMYCIN HYDROCHLORIDE [Suspect]
     Indication: INFECTION PARASITIC
     Route: 042
     Dates: start: 19951102, end: 19951108
  5. PRIMAXIN IM [Suspect]
     Indication: PYREXIA
     Route: 042
     Dates: start: 19951107, end: 19951108
  6. RESPRIM FORTE [Suspect]
     Indication: PRODUCT USED FOR UNKNOWN INDICATION
     Route: 065
  7. RETROVIR [Concomitant]
     Indication: HIV INFECTION
     Route: 048
  8. ZALCITABINE [Concomitant]
     Route: 048
  9. ITRACONAZOLE [Concomitant]
     Route: 065

REACTIONS (4)
  - Metabolic acidosis [Unknown]
  - Renal failure acute [Unknown]
  - Pancreatitis [Unknown]
  - Hypoglycaemia [Unknown]
